FAERS Safety Report 15739037 (Version 1)
Quarter: 2018Q4

REPORT INFORMATION
  Report Type: Spontaneous
  Country: CA (occurrence: CA)
  Receive Date: 20181219
  Receipt Date: 20181219
  Transmission Date: 20190205
  Serious: Yes (Other)
  Sender: FDA-Public Use
  Company Number: CA-TEVA-2018-CA-990425

PATIENT
  Age: 58 Year
  Sex: Female

DRUGS (1)
  1. PHENYTOIN. [Suspect]
     Active Substance: PHENYTOIN
     Route: 042

REACTIONS (3)
  - Rash maculo-papular [Recovered/Resolved]
  - Rash vesicular [Recovered/Resolved]
  - Purple glove syndrome [Recovered/Resolved]
